FAERS Safety Report 21974673 (Version 1)
Quarter: 2023Q1

REPORT INFORMATION
  Report Type: Spontaneous
  Country: US (occurrence: None)
  Receive Date: 20230208
  Receipt Date: 20230208
  Transmission Date: 20230418
  Serious: Yes (Life-Threatening, Hospitalization, Disabling)
  Sender: FDA-Public Use
  Company Number: None

PATIENT
  Age: 83 Year
  Sex: Female
  Weight: 65.6 kg

DRUGS (4)
  1. ARTIFICIAL TEARS LUBRICANT EYE DROPS (CARBOXYMETHYLCELLULOSE SODIUM) [Suspect]
     Active Substance: CARBOXYMETHYLCELLULOSE SODIUM
     Route: 047
  2. LUMIGAN [Concomitant]
     Active Substance: BIMATOPROST
  3. PREDNISOLONE [Concomitant]
     Active Substance: PREDNISOLONE
  4. COMBIGAN [Concomitant]
     Active Substance: BRIMONIDINE TARTRATE\TIMOLOL MALEATE

REACTIONS (5)
  - Cellulitis orbital [None]
  - Corneal perforation [None]
  - Open globe injury [None]
  - Endophthalmitis [None]
  - Pseudomonas test positive [None]

NARRATIVE: CASE EVENT DATE: 20230205
